FAERS Safety Report 5814656-X (Version None)
Quarter: 2008Q3

REPORT INFORMATION
  Report Type: 
  Country: None (occurrence: None)
  Receive Date: 20080718
  Receipt Date: 20071205
  Transmission Date: 20090109
  Serious: No
  Sender: FDA-Public Use
  Company Number: US-KINGPHARMUSA00001-K200701573

PATIENT

DRUGS (2)
  1. LEVOXYL [Suspect]
     Dosage: UNK, UNK
     Route: 048
     Dates: start: 19950101
  2. LEVOXYL [Suspect]
     Dosage: 200 MCG, QD
     Route: 048

REACTIONS (5)
  - CONDITION AGGRAVATED [None]
  - HYPERSENSITIVITY [None]
  - LACRIMATION INCREASED [None]
  - RHINORRHOEA [None]
  - SNEEZING [None]
